FAERS Safety Report 7638332-6 (Version None)
Quarter: 2011Q3

REPORT INFORMATION
  Report Type: 
  Country: None (occurrence: None)
  Receive Date: 20110727
  Receipt Date: 20110712
  Transmission Date: 20111222
  Serious: Yes (Other)
  Sender: FDA-Public Use
  Company Number: PL-JNJFOC-20110710128

PATIENT
  Age: 8 Month
  Sex: Male

DRUGS (2)
  1. ZYRTEC [Suspect]
     Route: 048
  2. ZYRTEC [Suspect]
     Indication: PRODUCT USED FOR UNKNOWN INDICATION
     Dosage: DOSE PER INTAKE: 5 DROPS DAILY 2 DAYS
     Route: 048
     Dates: start: 20110701, end: 20110701

REACTIONS (1)
  - RASH GENERALISED [None]
